FAERS Safety Report 20958565 (Version 1)
Quarter: 2022Q2

REPORT INFORMATION
  Report Type: Spontaneous
  Country: MX (occurrence: MX)
  Receive Date: 20220614
  Receipt Date: 20220614
  Transmission Date: 20220721
  Serious: Yes (Other)
  Sender: FDA-Public Use
  Company Number: MX-002147023-NVSC2022MX064815

PATIENT
  Age: 51 Year
  Sex: Female
  Weight: 85 kg

DRUGS (9)
  1. XOLAIR [Suspect]
     Active Substance: OMALIZUMAB
     Indication: Asthma
     Route: 058
     Dates: start: 201810
  2. XOLAIR [Suspect]
     Active Substance: OMALIZUMAB
     Dosage: UNK, (4 VIALS) BIW
     Route: 058
     Dates: start: 20181001, end: 20220215
  3. FLUTICASONE PROPIONATE\SALMETEROL XINAFOATE [Suspect]
     Active Substance: FLUTICASONE PROPIONATE\SALMETEROL XINAFOATE
     Indication: Asthma
     Dosage: UNK, Q12H (50/100 MCGRS)
     Route: 055
     Dates: start: 201606
  4. BUDESONIDE [Suspect]
     Active Substance: BUDESONIDE
     Indication: Asthma
     Dosage: UNK (200MCGRS)
     Route: 055
     Dates: start: 201701
  5. FLUTICASONE [Concomitant]
     Active Substance: FLUTICASONE
     Indication: Rhinitis
     Dosage: UNK, Q12H (2)
     Route: 045
     Dates: start: 201510
  6. ALBUTEROL [Concomitant]
     Active Substance: ALBUTEROL
     Indication: Asthma
     Dosage: UNK, PRN
     Route: 055
     Dates: start: 201606
  7. EPINASTINE [Concomitant]
     Active Substance: EPINASTINE
     Indication: Rhinitis
     Dosage: 20 MG, QD
     Route: 048
     Dates: start: 201606
  8. MONTELUKAST [Concomitant]
     Active Substance: MONTELUKAST SODIUM
     Indication: Asthma
     Dosage: 10 MG, QD
     Route: 048
     Dates: start: 201606
  9. TIOTROPIUM [Concomitant]
     Active Substance: TIOTROPIUM
     Indication: Asthma
     Dosage: UNK, QD(14MCGS)
     Route: 055
     Dates: start: 201804

REACTIONS (2)
  - Tinnitus [Recovered/Resolved]
  - Hypoacusis [Recovered/Resolved]

NARRATIVE: CASE EVENT DATE: 20220101
